FAERS Safety Report 26005991 (Version 1)
Quarter: 2025Q4

REPORT INFORMATION
  Report Type: Spontaneous
  Country: EU (occurrence: EU)
  Receive Date: 20251106
  Receipt Date: 20251106
  Transmission Date: 20260117
  Serious: Yes (Other)
  Sender: VIIV
  Company Number: EU-VIIV HEALTHCARE- LV2025EME142262

PATIENT
  Age: 60 Year
  Sex: Male

DRUGS (1)
  1. TRIUMEQ [Suspect]
     Active Substance: ABACAVIR SULFATE\DOLUTEGRAVIR SODIUM\LAMIVUDINE
     Indication: Antiretroviral therapy
     Dosage: UNK

REACTIONS (4)
  - Pulmonary arterial hypertension [Unknown]
  - Weight increased [Recovering/Resolving]
  - Depression [Unknown]
  - Hepatic steatosis [Unknown]

NARRATIVE: CASE EVENT DATE: 20180501
